FAERS Safety Report 8990716 (Version 1)
Quarter: 2012Q4

REPORT INFORMATION
  Report Type: Spontaneous
  Country: US (occurrence: None)
  Receive Date: 20121226
  Receipt Date: 20121226
  Transmission Date: 20130627
  Serious: No
  Sender: FDA-Public Use
  Company Number: None

PATIENT
  Age: 52 Year
  Sex: Male
  Weight: 82.3 kg

DRUGS (1)
  1. HYDROCHLOROTHIAZIDE\LISINOPRIL [Suspect]
     Indication: HYPERTENSION
     Dosage: 1 TAB  EVERY DAY  PO
     Route: 048
     Dates: start: 20120413, end: 20121218

REACTIONS (1)
  - Angioedema [None]
